FAERS Safety Report 16918999 (Version 1)
Quarter: 2019Q4

REPORT INFORMATION
  Report Type: Spontaneous
  Country: US (occurrence: US)
  Receive Date: 20191015
  Receipt Date: 20191015
  Transmission Date: 20200122
  Serious: No
  Sender: FDA-Public Use
  Company Number: US-PFIZER INC-2019441191

PATIENT
  Age: 73 Year
  Sex: Female

DRUGS (1)
  1. IBRANCE [Suspect]
     Active Substance: PALBOCICLIB
     Indication: BREAST CANCER FEMALE
     Dosage: 100 MG, CYCLIC(TAKE 1 CAPSULE BY MOUTH DAILY DAYS 1-21 EVERY 28 DAYS)
     Route: 048
     Dates: start: 20190301

REACTIONS (1)
  - White blood cell count decreased [Recovering/Resolving]
